FAERS Safety Report 5148564-7 (Version None)
Quarter: 2006Q4

REPORT INFORMATION
  Report Type: 
  Country: None (occurrence: None)
  Receive Date: 20061106
  Receipt Date: 20061024
  Transmission Date: 20070319
  Serious: Yes (Hospitalization, Other)
  Sender: FDA-Public Use
  Company Number: FABR-11705

PATIENT
  Age: 54 Year
  Sex: Female

DRUGS (4)
  1. FABRAZYME [Suspect]
     Indication: FABRY'S DISEASE
     Dosage: 1 MG/KG Q2WKS IV
     Route: 042
     Dates: start: 20040601, end: 20040601
  2. CALCIUM CHANNEL BLOCKER [Concomitant]
  3. STATINS [Concomitant]
  4. TRICYCLIC ANTIDEPRESSANTS [Concomitant]

REACTIONS (2)
  - ANGIONEUROTIC OEDEMA [None]
  - SUICIDE ATTEMPT [None]
